FAERS Safety Report 4303032-7 (Version None)
Quarter: 2004Q1

REPORT INFORMATION
  Report Type: 
  Country: None (occurrence: None)
  Receive Date: 20040224
  Receipt Date: 20021227
  Transmission Date: 20041129
  Serious: Yes (Hospitalization, Disabling)
  Sender: FDA-Public Use
  Company Number: WAES 0212USA02348

PATIENT
  Age: 59 Year
  Sex: Male

DRUGS (5)
  1. ASPIRIN [Concomitant]
  2. PLAVIX [Concomitant]
  3. PROCARDIA [Concomitant]
  4. ALTACE [Concomitant]
  5. ZOCOR [Suspect]
     Indication: HYPERCHOLESTEROLAEMIA
     Route: 048
     Dates: start: 20010301, end: 20021224

REACTIONS (4)
  - AMNESIA [None]
  - COGNITIVE DISORDER [None]
  - EYE MOVEMENT DISORDER [None]
  - NEUROLOGICAL SYMPTOM [None]
